FAERS Safety Report 4941308-0 (Version None)
Quarter: 2006Q1

REPORT INFORMATION
  Report Type: 
  Country: None (occurrence: None)
  Receive Date: 20060313
  Receipt Date: 20060302
  Transmission Date: 20060701
  Serious: Yes (Hospitalization, Disabling)
  Sender: FDA-Public Use
  Company Number: US-MERCK-0603USA00623

PATIENT
  Age: 47 Year
  Sex: Female
  Weight: 145 kg

DRUGS (1)
  1. VIOXX [Suspect]
     Indication: ARTHRITIS
     Route: 048
     Dates: start: 19990101, end: 20040101

REACTIONS (5)
  - ADVERSE EVENT [None]
  - GALLBLADDER DISORDER [None]
  - OVERDOSE [None]
  - RENAL ABSCESS [None]
  - RENAL FAILURE [None]
